FAERS Safety Report 13500726 (Version 2)
Quarter: 2018Q1

REPORT INFORMATION
  Report Type: Spontaneous
  Country: US (occurrence: US)
  Receive Date: 20170501
  Receipt Date: 20180215
  Transmission Date: 20180508
  Serious: No
  Sender: FDA-Public Use
  Company Number: US-ACTELION-A-US2017-153231

PATIENT
  Age: 35 Year
  Sex: Female

DRUGS (1)
  1. VALCHLOR [Suspect]
     Active Substance: MECHLORETHAMINE
     Indication: MYCOSIS FUNGOIDES
     Dosage: THIN FILM TO AFFECTED SKIN ON M-W-F
     Route: 061
     Dates: start: 20170407

REACTIONS (2)
  - Expired product administered [Unknown]
  - Pruritus [Not Recovered/Not Resolved]
